FAERS Safety Report 9973978 (Version 2)
Quarter: 2014Q1

REPORT INFORMATION
  Report Type: Spontaneous
  Country: PR (occurrence: PR)
  Receive Date: 20140306
  Receipt Date: 20140306
  Transmission Date: 20141002
  Serious: No
  Sender: FDA-Public Use
  Company Number: PR-ABBVIE-12P-131-1001960-00

PATIENT
  Sex: Female

DRUGS (1)
  1. HUMIRA [Suspect]
     Indication: PRODUCT USED FOR UNKNOWN INDICATION
     Route: 058
     Dates: start: 201105

REACTIONS (5)
  - Inflammation [Unknown]
  - Neck pain [Unknown]
  - Pain in extremity [Unknown]
  - Pain in extremity [Unknown]
  - Drug ineffective [Unknown]
